FAERS Safety Report 7015029-7 (Version None)
Quarter: 2010Q3

REPORT INFORMATION
  Report Type: 
  Country: None (occurrence: None)
  Receive Date: 20100927
  Receipt Date: 20091124
  Transmission Date: 20110219
  Serious: No
  Sender: FDA-Public Use
  Company Number: US-ASTRAZENECA-2009SE28589

PATIENT
  Age: 84 Year
  Sex: Female
  Weight: 51.3 kg

DRUGS (1)
  1. ARIMIDEX [Suspect]
     Indication: BREAST CANCER
     Route: 048
     Dates: start: 20070101

REACTIONS (3)
  - CATARACT [None]
  - DECREASED APPETITE [None]
  - DYSGEUSIA [None]
